FAERS Safety Report 10202711 (Version 1)
Quarter: 2014Q2

REPORT INFORMATION
  Report Type: Spontaneous
  Country: IT (occurrence: IT)
  Receive Date: 20140528
  Receipt Date: 20140528
  Transmission Date: 20141212
  Serious: Yes (Death, Other)
  Sender: FDA-Public Use
  Company Number: IT-ACTAVIS-2014-11329

PATIENT
  Age: 48 Year
  Sex: Female

DRUGS (2)
  1. TRAMADOL (UNKNOWN) [Suspect]
     Indication: PRODUCT USED FOR UNKNOWN INDICATION
     Dosage: UNK
     Route: 065
  2. CARBAMAZEPINE [Concomitant]
     Indication: PRODUCT USED FOR UNKNOWN INDICATION
     Dosage: UNKNOWN
     Route: 065

REACTIONS (6)
  - Cardiac arrest [Fatal]
  - Respiratory depression [Fatal]
  - Bradycardia [Fatal]
  - Completed suicide [Fatal]
  - Drug abuse [Fatal]
  - Intentional overdose [Fatal]
